FAERS Safety Report 7287299-1 (Version None)
Quarter: 2011Q1

REPORT INFORMATION
  Report Type: 
  Country: None (occurrence: None)
  Receive Date: 20110125
  Receipt Date: 20110110
  Transmission Date: 20110831
  Serious: Yes (Death)
  Sender: FDA-Public Use
  Company Number: 025519

PATIENT
  Age: 49 Year
  Sex: Female

DRUGS (5)
  1. PROPOXYPHENE HYDROCHLORIDE [Suspect]
     Dosage: ORAL
     Route: 048
  2. QUETIAPINE [Suspect]
     Dosage: ORAL
     Route: 048
  3. ETHANOL [Suspect]
     Dosage: ORAL
     Route: 048
  4. ALPRAZOLAM [Suspect]
     Dosage: ORAL
     Route: 048
  5. CAFFEINE [Suspect]
     Dosage: ORAL
     Route: 048

REACTIONS (2)
  - RESPIRATORY ARREST [None]
  - CARDIAC ARREST [None]
